FAERS Safety Report 19723029 (Version 1)
Quarter: 2021Q3

REPORT INFORMATION
  Report Type: Spontaneous
  Country: DE (occurrence: DE)
  Receive Date: 20210819
  Receipt Date: 20210819
  Transmission Date: 20211014
  Serious: Yes (Hospitalization, Other)
  Sender: FDA-Public Use
  Company Number: DE-TEVA-2021-DE-1941928

PATIENT
  Age: 87 Year
  Sex: Female
  Weight: 65 kg

DRUGS (8)
  1. FOLSAURE [Concomitant]
     Active Substance: FOLIC ACID
     Dosage: 5 MILLIGRAM DAILY; 5 MG, 1?0?0?0
  2. METOPROLOL. [Suspect]
     Active Substance: METOPROLOL
     Dosage: 95 MILLIGRAM DAILY; 1?0?0?0
  3. LOPERAMID [Concomitant]
     Active Substance: LOPERAMIDE
     Dosage: 4 MILLIGRAM DAILY; 1?0?1?0
  4. PANKREAS?PULVER VOM SCHWEIN [Concomitant]
     Dosage: 6 DOSAGE FORMS DAILY; 25000 MG, 2?2?2?0
  5. RISPERIDON [Suspect]
     Active Substance: RISPERIDONE
     Dosage: 1 DOSAGE FORMS DAILY; 0?0?0?1
  6. CYANOCOBALAMIN (VITAMIN B12) [Concomitant]
     Dosage: 1 DOSAGE FORMS DAILY; 1?0?0?0
  7. TOREMIFEN [Suspect]
     Active Substance: TOREMIFENE
     Dosage: 10 MILLIGRAM DAILY; 1?0?0?0
  8. PHENPROCOUMON [Concomitant]
     Active Substance: PHENPROCOUMON
     Dosage: 3 MILLIGRAM DAILY; 1?0?0?0

REACTIONS (6)
  - General physical health deterioration [Unknown]
  - Atrial fibrillation [Unknown]
  - Electrocardiogram abnormal [Unknown]
  - Bradycardia [Unknown]
  - Decubitus ulcer [Unknown]
  - Urinary incontinence [Unknown]
